FAERS Safety Report 9841586 (Version 1)
Quarter: 2013Q4

REPORT INFORMATION
  Report Type: Spontaneous
  Country: US (occurrence: None)
  Receive Date: 20131219
  Receipt Date: 20131219
  Transmission Date: 20140711
  Serious: Yes (Death)
  Sender: FDA-Public Use
  Company Number: 163-20785-13054232

PATIENT
  Age: 76 Year
  Sex: Male

DRUGS (9)
  1. THALOMID [Suspect]
     Indication: PLASMA CELL MYELOMA
     Dosage: 100 MG, 1 IN 1 D, PO
     Route: 048
     Dates: start: 200811
  2. ARTIFICIAL TEARS (ARTIFICIAL TEARS) [Concomitant]
  3. BENADRYL ALLERGY (BENADRYL ALLERGY) [Concomitant]
  4. COLACE [Concomitant]
  5. COMBIGAN (COMBIGAN) [Concomitant]
  6. DORZOLAMIDE HYDROCHLORIDE-TIMOLOL MALEATE (COSOPT) [Concomitant]
  7. FLOMAX (TAMSULOSIN) [Concomitant]
  8. HYDROCODONE ACETAMINOPHEN (VICODIN) [Concomitant]
  9. LACTULOSE (LACTULOSE) [Concomitant]

REACTIONS (1)
  - Death [None]
